FAERS Safety Report 5287322-X (Version None)
Quarter: 2007Q1

REPORT INFORMATION
  Report Type: 
  Country: None (occurrence: None)
  Receive Date: 20070116
  Receipt Date: 20061211
  Transmission Date: 20070707
  Serious: No
  Sender: FDA-Public Use
  Company Number: 2006SP004353

PATIENT
  Sex: Male
  Weight: 83.9154 kg

DRUGS (2)
  1. LUNESTA [Suspect]
     Indication: INSOMNIA
     Dosage: HS; ORAL
     Route: 048
     Dates: start: 20061128, end: 20061207
  2. HYDROCODONE [Concomitant]

REACTIONS (1)
  - DYSGEUSIA [None]
